FAERS Safety Report 12612765 (Version 2)
Quarter: 2017Q2

REPORT INFORMATION
  Report Type: Spontaneous
  Country: US (occurrence: US)
  Receive Date: 20160801
  Receipt Date: 20170407
  Transmission Date: 20170830
  Serious: Yes (Other)
  Sender: FDA-Public Use
  Company Number: US-ASTRAZENECA-2016SE65698

PATIENT
  Age: 1055 Month
  Sex: Female
  Weight: 59.4 kg

DRUGS (1)
  1. BYDUREON [Suspect]
     Active Substance: EXENATIDE
     Indication: TYPE 2 DIABETES MELLITUS
     Route: 058
     Dates: start: 2012

REACTIONS (9)
  - Memory impairment [Unknown]
  - Injection site haemorrhage [Unknown]
  - Product use issue [Unknown]
  - Underdose [Unknown]
  - Malaise [Unknown]
  - Injection site extravasation [Unknown]
  - Cerebrovascular accident [Unknown]
  - Device malfunction [Unknown]
  - Body height decreased [Unknown]

NARRATIVE: CASE EVENT DATE: 201702
